FAERS Safety Report 17599158 (Version 3)
Quarter: 2020Q2

REPORT INFORMATION
  Report Type: Spontaneous
  Country: US (occurrence: US)
  Receive Date: 20200330
  Receipt Date: 20200511
  Transmission Date: 20200713
  Serious: Yes (Hospitalization, Other)
  Sender: FDA-Public Use
  Company Number: US-009507513-2003USA009104

PATIENT
  Age: 55 Year
  Sex: Female
  Weight: 63.58 kg

DRUGS (5)
  1. HYDROCODONE [Concomitant]
     Active Substance: HYDROCODONE
     Indication: PAIN
     Dosage: UNK, PRN/UNK
     Route: 048
  2. COMPAZINE (PROCHLORPERAZINE EDISYLATE) [Concomitant]
     Active Substance: PROCHLORPERAZINE EDISYLATE
     Indication: NAUSEA
     Dosage: 10 MILLIGRAM, PRN/UNK
     Route: 048
  3. KEYTRUDA [Suspect]
     Active Substance: PEMBROLIZUMAB
     Indication: MALIGNANT MELANOMA STAGE III
     Dosage: 200 MG EVERY 21 DAYS (ONCE)
     Route: 042
     Dates: start: 20200221, end: 20200313
  4. APAP [Concomitant]
     Active Substance: ACETAMINOPHEN
     Indication: PAIN
     Dosage: UNK, PRN
     Route: 048
  5. CLARITIN [Concomitant]
     Active Substance: LORATADINE
     Dosage: 10 MILLIGRAM, QD
     Route: 048

REACTIONS (29)
  - Hypokalaemia [Unknown]
  - Pain [Unknown]
  - Mental status changes [Unknown]
  - Electrocardiogram T wave inversion [Unknown]
  - Ventricular tachycardia [Unknown]
  - Cranial nerve paralysis [Unknown]
  - Electrocardiogram ST segment abnormal [Unknown]
  - Hypernatraemia [Unknown]
  - Diplopia [Unknown]
  - Myalgia [Unknown]
  - Respiratory failure [Unknown]
  - Tachycardia [Unknown]
  - IIIrd nerve paralysis [Unknown]
  - Myasthenia gravis [Unknown]
  - Myocarditis [Unknown]
  - Hypovolaemia [Unknown]
  - Myositis [Unknown]
  - Subdural haematoma [Unknown]
  - Ventricular hypokinesia [Unknown]
  - Muscle spasms [Unknown]
  - Acute respiratory failure [Unknown]
  - Dyspnoea [Unknown]
  - Atrioventricular block [Unknown]
  - Autoimmune myositis [Unknown]
  - Cardiac failure congestive [Unknown]
  - Shock [Unknown]
  - Troponin increased [Unknown]
  - Heparin-induced thrombocytopenia test positive [Unknown]
  - Dizziness [Unknown]

NARRATIVE: CASE EVENT DATE: 2020
